FAERS Safety Report 7824859-0 (Version None)
Quarter: 2011Q4

REPORT INFORMATION
  Report Type: 
  Country: None (occurrence: None)
  Receive Date: 20111019
  Receipt Date: 20110215
  Transmission Date: 20120403
  Serious: No
  Sender: FDA-Public Use
  Company Number: US-BRISTOL-MYERS SQUIBB COMPANY-15551849

PATIENT
  Sex: Female
  Weight: 95 kg

DRUGS (6)
  1. AVALIDE [Suspect]
  2. LOVASTATIN [Concomitant]
     Dosage: EVERY NIGHT AT BEDTIME
  3. ATENOLOL [Concomitant]
     Dosage: 1 DF= 50UNITS NOS
  4. EQUATE [Concomitant]
     Indication: SLEEP DISORDER
  5. ASPIRIN [Concomitant]
     Dosage: 325 UNITS NOS
  6. KLOR-CON [Concomitant]

REACTIONS (2)
  - HEART RATE IRREGULAR [None]
  - HEADACHE [None]
